FAERS Safety Report 22854075 (Version 7)
Quarter: 2023Q4

REPORT INFORMATION
  Report Type: Report from Study
  Country: US (occurrence: US)
  Receive Date: 20230823
  Receipt Date: 20231023
  Transmission Date: 20240110
  Serious: Yes (Other)
  Sender: FDA-Public Use
  Company Number: US-ABBVIE-5371662

PATIENT
  Sex: Female

DRUGS (3)
  1. SYNTHROID [Suspect]
     Active Substance: LEVOTHYROXINE SODIUM
     Indication: Hypothyroidism
     Route: 048
     Dates: start: 20230812
  2. SYNTHROID [Suspect]
     Active Substance: LEVOTHYROXINE SODIUM
     Indication: Hypothyroidism
     Dosage: STRENGTH: 50 MICROGRAM
     Route: 048
     Dates: start: 20230812
  3. LEVOTHYROXINE [Concomitant]
     Active Substance: LEVOTHYROXINE
     Indication: Product used for unknown indication

REACTIONS (11)
  - Surgery [Unknown]
  - Malaise [Unknown]
  - Oral candidiasis [Unknown]
  - Gastrointestinal disorder [Unknown]
  - Thermal burn [Unknown]
  - Sleep disorder [Unknown]
  - Irritability [Unknown]
  - Gastrooesophageal reflux disease [Unknown]
  - Product use complaint [Not Recovered/Not Resolved]
  - Appetite disorder [Unknown]
  - Drug ineffective [Recovering/Resolving]

NARRATIVE: CASE EVENT DATE: 20230101
